FAERS Safety Report 5887776-1 (Version None)
Quarter: 2008Q3

REPORT INFORMATION
  Report Type: 
  Country: None (occurrence: None)
  Receive Date: 20080918
  Receipt Date: 20080908
  Transmission Date: 20090109
  Serious: Yes (Hospitalization, Other)
  Sender: FDA-Public Use
  Company Number: PHHO2008AT01473

PATIENT
  Sex: Male

DRUGS (2)
  1. SANDIMMUNE [Suspect]
     Indication: LIVER TRANSPLANT
     Route: 048
     Dates: start: 20071214
  2. NO TREATMENT RECEIVED NOMED [Suspect]
     Indication: LIVER TRANSPLANT
     Dosage: NO TREATMENT

REACTIONS (13)
  - ABDOMINAL ABSCESS [None]
  - ABDOMINAL PAIN [None]
  - BACTERIAL INFECTION [None]
  - CYTOMEGALOVIRUS INFECTION [None]
  - DIABETES MELLITUS [None]
  - ENTEROCOCCAL INFECTION [None]
  - FUNGAL INFECTION [None]
  - PERITONITIS [None]
  - PNEUMONIA [None]
  - RENAL FAILURE ACUTE [None]
  - RESPIRATORY FAILURE [None]
  - SEPSIS [None]
  - VIRAL INFECTION [None]
